FAERS Safety Report 16124208 (Version 1)
Quarter: 2019Q1

REPORT INFORMATION
  Report Type: Spontaneous
  Country: US (occurrence: US)
  Receive Date: 20190327
  Receipt Date: 20190327
  Transmission Date: 20190418
  Serious: Yes (Other)
  Sender: FDA-Public Use
  Company Number: US-ANIPHARMA-2018-US-013846

PATIENT
  Age: 53 Year
  Sex: Male

DRUGS (5)
  1. RADIUM 223 [Suspect]
     Active Substance: RADIUM RA-223 DICHLORIDE
     Dosage: 5 DOSES, THE LAST ON 04/13/18
     Dates: end: 20180413
  2. BICALUTAMIDE. [Suspect]
     Active Substance: BICALUTAMIDE
     Indication: PROSTATE CANCER
  3. DOCETAXEL. [Suspect]
     Active Substance: DOCETAXEL
     Dosage: 6 CYCLES
  4. ABIRATERONE. [Suspect]
     Active Substance: ABIRATERONE ACETATE
  5. DEGARELIX [Suspect]
     Active Substance: DEGARELIX

REACTIONS (2)
  - Prostatic specific antigen increased [Unknown]
  - Neoplasm progression [Unknown]
